FAERS Safety Report 16928767 (Version 1)
Quarter: 2019Q4

REPORT INFORMATION
  Report Type: Spontaneous
  Country: US (occurrence: US)
  Receive Date: 20190823
  Receipt Date: 20190823
  Transmission Date: 20200122
  Serious: Yes (Hospitalization)
  Sender: FDA-Public Use
  Company Number: None

PATIENT
  Age: 74 Year
  Sex: Female
  Weight: 73.5 kg

DRUGS (2)
  1. ETOPOSIDE (VP-16) [Suspect]
     Active Substance: ETOPOSIDE
     Dates: end: 20190801
  2. CARBOPLATIN. [Suspect]
     Active Substance: CARBOPLATIN
     Dates: end: 20190730

REACTIONS (6)
  - Dyspnoea [None]
  - Cough [None]
  - Pyrexia [None]
  - Pancytopenia [None]
  - Atelectasis [None]
  - Pneumonia [None]

NARRATIVE: CASE EVENT DATE: 20190815
